FAERS Safety Report 11401154 (Version 1)
Quarter: 2015Q3

REPORT INFORMATION
  Report Type: Spontaneous
  Country: US (occurrence: US)
  Receive Date: 20150820
  Receipt Date: 20150820
  Transmission Date: 20151125
  Serious: No
  Sender: FDA-Public Use
  Company Number: US-GLAXOSMITHKLINE-US2015GSK107151

PATIENT
  Sex: Male
  Weight: 79.4 kg

DRUGS (5)
  1. FINASTERIDE. [Concomitant]
     Active Substance: FINASTERIDE
  2. VOTRIENT [Suspect]
     Active Substance: PAZOPANIB HYDROCHLORIDE
     Indication: METASTASES TO LUNG
     Dosage: 400 UNK, UNK
     Route: 048
  3. SIMVASTATIN FILM-COATED TABLET [Concomitant]
     Active Substance: SIMVASTATIN
  4. TAMSULOSIN [Concomitant]
     Active Substance: TAMSULOSIN
  5. VOTRIENT [Suspect]
     Active Substance: PAZOPANIB HYDROCHLORIDE
     Indication: RENAL CANCER
     Dosage: 800 MG, QD
     Route: 048
     Dates: start: 20150710

REACTIONS (5)
  - Palmar-plantar erythrodysaesthesia syndrome [Unknown]
  - Skin disorder [Unknown]
  - Nail disorder [Unknown]
  - Blister [Unknown]
  - Pruritus [Unknown]
